FAERS Safety Report 25631297 (Version 2)
Quarter: 2025Q3

REPORT INFORMATION
  Report Type: Spontaneous
  Country: KR (occurrence: KR)
  Receive Date: 20250801
  Receipt Date: 20250806
  Transmission Date: 20251020
  Serious: Yes (Other)
  Sender: ORGANON
  Company Number: KR-ORGANON-O2507KOR002677

PATIENT
  Age: 40 Year
  Sex: Female

DRUGS (2)
  1. ETONOGESTREL [Suspect]
     Active Substance: ETONOGESTREL
     Indication: Contraception
     Route: 059
     Dates: start: 20250423
  2. ETONOGESTREL [Concomitant]
     Active Substance: ETONOGESTREL
     Indication: Contraception
     Route: 059
     Dates: start: 2023, end: 20250423

REACTIONS (9)
  - Pregnancy with implant contraceptive [Recovered/Resolved]
  - Unintended pregnancy [Recovered/Resolved]
  - Abortion missed [Recovered/Resolved]
  - Vaginal haemorrhage [Unknown]
  - Product use issue [Unknown]
  - Mental fatigue [Recovering/Resolving]
  - Fatigue [Recovering/Resolving]
  - Emotional distress [Recovering/Resolving]
  - Discomfort [Recovering/Resolving]

NARRATIVE: CASE EVENT DATE: 20250101
